FAERS Safety Report 5285877-2 (Version None)
Quarter: 2007Q1

REPORT INFORMATION
  Report Type: 
  Country: None (occurrence: None)
  Receive Date: 20070104
  Receipt Date: 20061006
  Transmission Date: 20070707
  Serious: Yes (Hospitalization)
  Sender: FDA-Public Use
  Company Number: BDI-008699

PATIENT
  Age: 63 Year
  Sex: Male
  Weight: 114 kg

DRUGS (9)
  1. MULTIHANCE [Suspect]
     Indication: METASTASES TO CENTRAL NERVOUS SYSTEM
     Dosage: 20 ML ONCE IV
     Route: 042
     Dates: start: 20060927, end: 20060927
  2. ATIVAN [Concomitant]
  3. SPIRIVA [Concomitant]
  4. ADVAIR DISKUS 100/50 [Concomitant]
  5. THEO-24 [Concomitant]
  6. NEXIUM [Concomitant]
  7. CENTRUM SILVER [Concomitant]
  8. IRON SUPPLEMENT [Concomitant]
  9. ADVIL /01717101/ [Concomitant]

REACTIONS (1)
  - HYPERSENSITIVITY [None]
